FAERS Safety Report 5062127-3 (Version None)
Quarter: 2006Q3

REPORT INFORMATION
  Report Type: 
  Country: None (occurrence: None)
  Receive Date: 20060703
  Receipt Date: 20051007
  Transmission Date: 20061208
  Serious: No
  Sender: FDA-Public Use
  Company Number: 2005S1009970

PATIENT
  Age: 54 Year
  Sex: Female
  Weight: 62.1 kg

DRUGS (4)
  1. CLOZAPINE [Suspect]
     Indication: BIPOLAR DISORDER
     Dosage: 300 MG;BID;ORAL
     Route: 048
     Dates: start: 20041122
  2. LAMOTRIGINE [Concomitant]
  3. DESMOPRESSIN [Concomitant]
  4. DOCUSATE SODIUM [Concomitant]

REACTIONS (2)
  - GRANULOCYTOPENIA [None]
  - LEUKOPENIA [None]
